FAERS Safety Report 17368959 (Version 1)
Quarter: 2020Q1

REPORT INFORMATION
  Report Type: Spontaneous
  Country: BG (occurrence: BG)
  Receive Date: 20200204
  Receipt Date: 20200204
  Transmission Date: 20200409
  Serious: Yes (Hospitalization)
  Sender: FDA-Public Use
  Company Number: BG-SA-2020SA023681

PATIENT
  Age: 50 Year
  Sex: Male

DRUGS (15)
  1. AVASTIN [Concomitant]
     Active Substance: BEVACIZUMAB
     Dosage: CONDUCTED 6 CYCLES OF 2ND LINE
  2. CETUXIMAB. [Concomitant]
     Active Substance: CETUXIMAB
  3. OXALIPLATIN. [Suspect]
     Active Substance: OXALIPLATIN
     Route: 065
  4. CAPEOX [Concomitant]
  5. CAPECITABINE. [Concomitant]
     Active Substance: CAPECITABINE
     Dosage: DIRECTED FOR 6 COURSES OF 3RD LINE
  6. VECTIBIX [Concomitant]
     Active Substance: PANITUMUMAB
  7. CAPECITABINE. [Concomitant]
     Active Substance: CAPECITABINE
  8. AFLIBERCEPT [Suspect]
     Active Substance: AFLIBERCEPT
     Dosage: UNK
     Route: 065
  9. AFLIBERCEPT [Suspect]
     Active Substance: AFLIBERCEPT
     Route: 065
  10. FOLFOX-4 [Concomitant]
     Active Substance: FLUOROURACIL\LEUCOVORIN CALCIUM\OXALIPLATIN
     Dosage: PERFORMED 6 COURSES 1ST LINE
  11. FOLFIRI [Concomitant]
     Active Substance: FLUOROURACIL\IRINOTECAN\LEUCOVORIN
  12. FILGRASTIM [Concomitant]
     Active Substance: FILGRASTIM
  13. FOLFOX-4 [Concomitant]
     Active Substance: FLUOROURACIL\LEUCOVORIN CALCIUM\OXALIPLATIN
     Dosage: CONDUCTED 6 CYCLES OF 2ND LINE
  14. AVASTIN [Concomitant]
     Active Substance: BEVACIZUMAB
     Dosage: PERFORMED 6 COURSES 1ST LINE
  15. AVASTIN [Concomitant]
     Active Substance: BEVACIZUMAB
     Dosage: DIRECTED FOR 6 COURSES OF 3RD LINE

REACTIONS (3)
  - Urticaria [Unknown]
  - Jaundice [Unknown]
  - Rash [Unknown]
